FAERS Safety Report 9369987 (Version 1)
Quarter: 2013Q2

REPORT INFORMATION
  Report Type: Spontaneous
  Country: US (occurrence: US)
  Receive Date: 20130626
  Receipt Date: 20130626
  Transmission Date: 20140414
  Serious: Yes (Other)
  Sender: FDA-Public Use
  Company Number: US-PFIZER INC-2013188900

PATIENT
  Age: 22 Year
  Sex: Female

DRUGS (1)
  1. AMLODIPINE BESILATE [Suspect]
     Dosage: 425MG
     Route: 048

REACTIONS (6)
  - Overdose [Unknown]
  - Atrioventricular block complete [Unknown]
  - Renal failure acute [Unknown]
  - Hypotension [Unknown]
  - Tachycardia [Unknown]
  - Toxicity to various agents [Unknown]
